FAERS Safety Report 8104492 (Version 3)
Quarter: 2013Q3

REPORT INFORMATION
  Report Type: Report from Study
  Country: JP (occurrence: JP)
  Receive Date: 20110824
  Receipt Date: 20130711
  Transmission Date: 20140515
  Serious: Yes (Life-Threatening, Hospitalization, Other)
  Sender: FDA-Public Use
  Company Number: JP-BRISTOL-MYERS SQUIBB COMPANY-15769961

PATIENT
  Age: 81 Year
  Sex: Male
  Weight: 63 kg

DRUGS (8)
  1. SPRYCEL [Suspect]
     Indication: CHRONIC MYELOID LEUKAEMIA
     Route: 048
     Dates: start: 20110325, end: 20110328
  2. PANALDINE [Concomitant]
     Route: 048
  3. BAYASPIRIN [Concomitant]
     Route: 048
  4. CANDESARTAN CILEXETIL [Concomitant]
     Route: 048
  5. NORVASC [Concomitant]
     Route: 048
  6. TRICHLORMETHIAZIDE [Concomitant]
     Route: 048
  7. LASIX [Concomitant]
     Route: 048
  8. ZYLORIC [Concomitant]
     Route: 048

REACTIONS (2)
  - Pulmonary oedema [Recovered/Resolved]
  - Respiratory failure [Unknown]
